FAERS Safety Report 5804322-9 (Version None)
Quarter: 2008Q3

REPORT INFORMATION
  Report Type: 
  Country: None (occurrence: None)
  Receive Date: 20080707
  Receipt Date: 20080707
  Transmission Date: 20090109
  Serious: Yes (Hospitalization, Disabling)
  Sender: FDA-Public Use
  Company Number: None

PATIENT
  Age: 35 Year
  Sex: Female
  Weight: 58.9676 kg

DRUGS (2)
  1. COMPAZINE [Suspect]
     Indication: NAUSEA
     Dosage: 25 MG 2X'S DAILY
     Dates: start: 20080703, end: 20080704
  2. COMPAZINE [Suspect]
     Indication: VOMITING
     Dosage: 25 MG 2X'S DAILY
     Dates: start: 20080703, end: 20080704

REACTIONS (4)
  - ANXIETY [None]
  - BRUXISM [None]
  - DYSPNOEA [None]
  - TONGUE DISORDER [None]
